FAERS Safety Report 21125714 (Version 1)
Quarter: 2022Q3

REPORT INFORMATION
  Report Type: Spontaneous
  Country: US (occurrence: US)
  Receive Date: 20220725
  Receipt Date: 20220725
  Transmission Date: 20221026
  Serious: No
  Sender: FDA-Public Use
  Company Number: US-BAUSCH-BL-2022-018279

PATIENT
  Age: 65 Year
  Sex: Male
  Weight: 79.450 kg

DRUGS (2)
  1. VYZULTA [Suspect]
     Active Substance: LATANOPROSTENE BUNOD
     Indication: Intraocular pressure increased
     Route: 047
     Dates: start: 20220715, end: 202207
  2. LEVOTHYROXINE [Concomitant]
     Active Substance: LEVOTHYROXINE
     Indication: Hypothyroidism

REACTIONS (3)
  - Dizziness [Unknown]
  - Fall [Unknown]
  - Expired product administered [Unknown]

NARRATIVE: CASE EVENT DATE: 20220701
